FAERS Safety Report 7339585-4 (Version None)
Quarter: 2011Q1

REPORT INFORMATION
  Report Type: 
  Country: None (occurrence: None)
  Receive Date: 20110308
  Receipt Date: 20110302
  Transmission Date: 20110831
  Serious: Yes (Hospitalization)
  Sender: FDA-Public Use
  Company Number: US-B.I. PHARMACEUTICALS,INC./RIDGEFIELD-2011-BP-01028BP

PATIENT
  Age: 67 Year
  Sex: Male
  Weight: 72.5 kg

DRUGS (6)
  1. PROTONIX [Concomitant]
     Dates: start: 20100428
  2. PRADAXA [Suspect]
     Indication: ATRIAL FIBRILLATION
     Dosage: 300 MG
     Route: 048
     Dates: start: 20101125, end: 20101212
  3. SOTALOL HYDROCHLORIDE [Concomitant]
     Dates: start: 20091124
  4. COREG [Concomitant]
     Dates: start: 20091215
  5. NITRO-BID [Concomitant]
     Dates: start: 20091124
  6. ASPIRIN [Concomitant]
     Dates: start: 20090428

REACTIONS (1)
  - GINGIVAL BLEEDING [None]
